FAERS Safety Report 7741315-9 (Version None)
Quarter: 2011Q3

REPORT INFORMATION
  Report Type: 
  Country: None (occurrence: None)
  Receive Date: 20110909
  Receipt Date: 20110902
  Transmission Date: 20111222
  Serious: Yes (Other)
  Sender: FDA-Public Use
  Company Number: US-SANOFI-AVENTIS-2011SA032153

PATIENT
  Age: 46 Year
  Sex: Female
  Weight: 69 kg

DRUGS (5)
  1. PLAVIX [Suspect]
     Route: 048
     Dates: start: 20110510, end: 20110718
  2. CRESTOR [Concomitant]
     Route: 048
     Dates: start: 20110312
  3. PLAVIX [Suspect]
     Route: 048
     Dates: start: 20110312, end: 20110509
  4. ASPIRIN [Concomitant]
     Route: 065
     Dates: start: 20110312
  5. CYMBALTA [Concomitant]
     Indication: DEPRESSION
     Route: 048
     Dates: start: 20110101

REACTIONS (13)
  - NAUSEA [None]
  - FATIGUE [None]
  - POLLAKIURIA [None]
  - CONTUSION [None]
  - ACCIDENTAL OVERDOSE [None]
  - ASTHENIA [None]
  - HYPOTENSION [None]
  - HALLUCINATION, VISUAL [None]
  - DEPRESSION [None]
  - HALLUCINATION, TACTILE [None]
  - TREMOR [None]
  - CHILLS [None]
  - AGITATION [None]
